FAERS Safety Report 10189340 (Version 1)
Quarter: 2014Q2

REPORT INFORMATION
  Report Type: Spontaneous
  Country: DE (occurrence: DE)
  Receive Date: 20140522
  Receipt Date: 20140522
  Transmission Date: 20141212
  Serious: Yes (Hospitalization)
  Sender: FDA-Public Use
  Company Number: DE-ASTRAZENECA-2014SE33485

PATIENT
  Age: 63 Year
  Sex: Female

DRUGS (12)
  1. SEROQUEL PROLONG [Suspect]
     Route: 048
     Dates: end: 20130908
  2. SEROQUEL PROLONG [Interacting]
     Route: 048
     Dates: start: 20130909, end: 20130915
  3. SEROQUEL PROLONG [Interacting]
     Route: 048
     Dates: start: 20130916
  4. AURORIX [Interacting]
     Route: 048
     Dates: start: 20130917, end: 20130925
  5. AURORIX [Interacting]
     Route: 048
     Dates: start: 20130926, end: 20130926
  6. AURORIX [Interacting]
     Route: 048
     Dates: start: 20130927, end: 20130929
  7. MYDOCALM [Concomitant]
     Route: 048
  8. BISOPROLOL [Concomitant]
     Route: 048
     Dates: start: 20130827
  9. HCT [Concomitant]
     Route: 048
     Dates: start: 20130827
  10. PANTOZOL [Concomitant]
     Route: 048
     Dates: start: 20130816
  11. DIPIPERON [Concomitant]
     Route: 048
     Dates: start: 20130918
  12. ATOSIL [Concomitant]
     Route: 048
     Dates: start: 20130918, end: 20131107

REACTIONS (4)
  - Drug interaction [Unknown]
  - Nausea [Recovered/Resolved]
  - Vision blurred [Recovered/Resolved]
  - Dizziness [Recovered/Resolved]
